FAERS Safety Report 11390280 (Version 1)
Quarter: 2015Q3

REPORT INFORMATION
  Report Type: Spontaneous
  Country: IT (occurrence: IT)
  Receive Date: 20150818
  Receipt Date: 20150818
  Transmission Date: 20151125
  Serious: Yes (Death)
  Sender: FDA-Public Use
  Company Number: IT-ACCORD-032943

PATIENT
  Age: 54 Year
  Sex: Male

DRUGS (1)
  1. GEMCITABINE/GEMCITABINE HYDROCHLORIDE [Suspect]
     Active Substance: GEMCITABINE\GEMCITABINE HYDROCHLORIDE
     Indication: KAPOSI^S SARCOMA
     Dosage: A 100-MINUTE INFUSION ON DAYS 1, 8 AND 15 EVERY 4 WEEKS
     Dates: start: 201205

REACTIONS (3)
  - Off label use [Unknown]
  - Completed suicide [Fatal]
  - Oedema peripheral [Unknown]
